FAERS Safety Report 6541139-4 (Version None)
Quarter: 2010Q1

REPORT INFORMATION
  Report Type: 
  Country: None (occurrence: None)
  Receive Date: 20100118
  Receipt Date: 20100115
  Transmission Date: 20100710
  Serious: Yes (Other)
  Sender: FDA-Public Use
  Company Number: A0588589A

PATIENT
  Age: 57 Year
  Sex: Male

DRUGS (4)
  1. ADVAIR [Suspect]
     Indication: ASTHMA
     Dosage: 1PUFF TWICE PER DAY
     Route: 055
  2. ALBUTEROL SULATE [Concomitant]
  3. ALBUTEROL [Concomitant]
  4. UNKNOWN MEDICATION [Concomitant]

REACTIONS (5)
  - APHONIA [None]
  - APPARENT DEATH [None]
  - DRUG INEFFECTIVE [None]
  - DYSPNOEA [None]
  - FATIGUE [None]
